FAERS Safety Report 5607401-4 (Version None)
Quarter: 2008Q1

REPORT INFORMATION
  Report Type: 
  Country: None (occurrence: None)
  Receive Date: 20080128
  Receipt Date: 20080128
  Transmission Date: 20080703
  Serious: Yes (Other)
  Sender: FDA-Public Use
  Company Number: None

PATIENT
  Age: 39 Year
  Sex: Male
  Weight: 83.9154 kg

DRUGS (1)
  1. ADVAIR DISKUS 250/50 [Suspect]
     Indication: ASTHMA
     Dosage: 250/50 ONCE DAILY PO
     Route: 048
     Dates: start: 20050701, end: 20070815

REACTIONS (3)
  - DYSPNOEA [None]
  - PANIC ATTACK [None]
  - SLEEP DISORDER [None]
